FAERS Safety Report 5472461-0 (Version None)
Quarter: 2007Q3

REPORT INFORMATION
  Report Type: 
  Country: None (occurrence: None)
  Receive Date: 20070926
  Receipt Date: 20070914
  Transmission Date: 20080115
  Serious: Yes (Disabling)
  Sender: FDA-Public Use
  Company Number: GXKR2007ID08017

PATIENT
  Age: 26 Year
  Sex: Male

DRUGS (2)
  1. GABEXAL (NGX)(GABAPENTIN) UNKNOWN [Suspect]
     Indication: NEURALGIA
     Dosage: 30 MG, TID, ORAL
     Route: 048
  2. AMITRIPTYLINE HCL [Concomitant]

REACTIONS (3)
  - CONDITION AGGRAVATED [None]
  - PAIN [None]
  - SOMNOLENCE [None]
